FAERS Safety Report 26117513 (Version 2)
Quarter: 2025Q4

REPORT INFORMATION
  Report Type: Spontaneous
  Country: MX (occurrence: MX)
  Receive Date: 20251203
  Receipt Date: 20251208
  Transmission Date: 20260117
  Serious: Yes (Life-Threatening)
  Sender: SANDOZ
  Company Number: MX-002147023-NVSC2025MX154296

PATIENT
  Age: 57 Year
  Sex: Female
  Weight: 50.5 kg

DRUGS (13)
  1. KISQALI [Suspect]
     Active Substance: RIBOCICLIB SUCCINATE
     Dosage: 2 DF, QD,  2 DOSAGE FORM, QD (2 OF 200MG)
     Route: 048
     Dates: start: 202508
  2. KISQALI [Suspect]
     Active Substance: RIBOCICLIB SUCCINATE
     Dosage: 2 DOSAGE FORM, QD (2 OF 200MG)
     Route: 048
     Dates: start: 20250904
  3. KISQALI [Suspect]
     Active Substance: RIBOCICLIB SUCCINATE
     Dosage: 2 DOSAGE FORM, QD (2 OF 200MG)
     Route: 048
     Dates: start: 20250904
  4. KISQALI [Suspect]
     Active Substance: RIBOCICLIB SUCCINATE
     Dosage: 3 DF, QD,  3 DOSAGE FORM, (3 OF 200MG)
     Route: 048
     Dates: start: 202509
  5. KISQALI [Suspect]
     Active Substance: RIBOCICLIB SUCCINATE
     Indication: Breast cancer
     Dosage: 3 DOSAGE FORM, (3 OF 200MG)
     Route: 048
     Dates: start: 20250802, end: 20250829
  6. KISQALI [Suspect]
     Active Substance: RIBOCICLIB SUCCINATE
     Dosage: 3 DOSAGE FORM, QD (3 OF 200MG)
     Route: 048
     Dates: start: 20250909
  7. METFORMIN [Suspect]
     Active Substance: METFORMIN HYDROCHLORIDE
     Dosage: 0.5 DOSAGE FORM, QHS (AT NIGHT)
     Route: 065
  8. METFORMIN [Suspect]
     Active Substance: METFORMIN HYDROCHLORIDE
     Indication: Diabetes mellitus
     Dosage: 1 DOSAGE FORM, QD
     Route: 048
     Dates: start: 202204
  9. METFORMIN [Suspect]
     Active Substance: METFORMIN HYDROCHLORIDE
     Dosage: 1 DF,  1 DOSAGE FORM (1 IN THE MORNING AND 0.5  AT NIGHT)
     Route: 048
  10. TAMOXIFEN [Suspect]
     Active Substance: TAMOXIFEN
     Indication: Breast cancer
     Dosage: 1 DOSAGE FORM, QD, TABLET, (1 OF 20MG)
     Route: 048
     Dates: start: 20250802
  11. ANASTROZOLE [Concomitant]
     Active Substance: ANASTROZOLE
     Indication: Breast cancer
     Dosage: 1 DOSAGE FORM, QD (1 MG TABLET)
     Route: 048
     Dates: start: 202201, end: 202506
  12. LINAGLIPTIN [Concomitant]
     Active Substance: LINAGLIPTIN
     Dosage: 1 DF, QD,  1 DOSAGE FORM, QD (1 OF 5MG)
     Route: 048
  13. LINAGLIPTIN [Concomitant]
     Active Substance: LINAGLIPTIN
     Indication: Diabetes mellitus
     Dosage: 1 DOSAGE FORM, Q24H (5 MG TABLET)
     Route: 048
     Dates: start: 202204

REACTIONS (12)
  - White blood cell count decreased [Unknown]
  - Hypersensitivity [Recovered/Resolved]
  - Skin ulcer [Unknown]
  - Skin exfoliation [Recovered/Resolved]
  - Blister [Recovered/Resolved]
  - Visual impairment [Recovering/Resolving]
  - Weight decreased [Recovered/Resolved]
  - Drug hypersensitivity [Recovered/Resolved]
  - Blood glucose abnormal [Unknown]
  - Throat irritation [Not Recovered/Not Resolved]
  - Anaemia [Unknown]
  - Urticaria [Recovered/Resolved]

NARRATIVE: CASE EVENT DATE: 20250801
